FAERS Safety Report 6495155-1 (Version None)
Quarter: 2009Q4

REPORT INFORMATION
  Report Type: 
  Country: None (occurrence: None)
  Receive Date: 20091214
  Receipt Date: 20090507
  Transmission Date: 20100525
  Serious: Yes (Other)
  Sender: FDA-Public Use
  Company Number: US-BRISTOL-MYERS SQUIBB COMPANY-14615140

PATIENT
  Age: 52 Year
  Sex: Male
  Weight: 82 kg

DRUGS (9)
  1. ABILIFY [Suspect]
     Indication: DEPRESSION
     Dosage: TAKEN 2 NIGHTS
     Route: 048
     Dates: start: 20090310, end: 20090101
  2. OXYCONTIN [Concomitant]
  3. ELAVIL [Concomitant]
  4. VALIUM [Concomitant]
  5. NEURONTIN [Concomitant]
  6. ALPRAZOLAM [Concomitant]
  7. AMBIEN [Concomitant]
  8. MAXALT [Concomitant]
  9. MOBIC [Concomitant]

REACTIONS (5)
  - BLOOD CREATINE PHOSPHOKINASE INCREASED [None]
  - BODY TEMPERATURE INCREASED [None]
  - CONFUSIONAL STATE [None]
  - MUSCLE RIGIDITY [None]
  - MUSCLE SPASMS [None]
